FAERS Safety Report 5699070-2 (Version None)
Quarter: 2008Q2

REPORT INFORMATION
  Report Type: 
  Country: None (occurrence: None)
  Receive Date: 20080408
  Receipt Date: 20060825
  Transmission Date: 20081010
  Serious: No
  Sender: FDA-Public Use
  Company Number: US-BAYER-US-2006-031612

PATIENT
  Age: 80 Year
  Sex: Male

DRUGS (1)
  1. FLUDARA [Suspect]
     Dates: end: 20060710

REACTIONS (1)
  - THROMBOCYTOPENIA [None]
